FAERS Safety Report 14780506 (Version 2)
Quarter: 2018Q2

REPORT INFORMATION
  Report Type: Spontaneous
  Country: US (occurrence: US)
  Receive Date: 20180419
  Receipt Date: 20180430
  Transmission Date: 20180711
  Serious: Yes (Other)
  Sender: FDA-Public Use
  Company Number: US-BAUSCH-BL-2018-009582

PATIENT
  Age: 60 Year
  Sex: Male
  Weight: 90.8 kg

DRUGS (12)
  1. LEXAPRO [Concomitant]
     Active Substance: ESCITALOPRAM OXALATE
     Indication: ANXIETY
  2. JUBLIA [Suspect]
     Active Substance: EFINACONAZOLE
     Indication: ONYCHOMYCOSIS
     Dosage: ONCE IN THE MORNING
     Route: 061
     Dates: start: 20160819, end: 201802
  3. ALLEGRA [Concomitant]
     Active Substance: FEXOFENADINE HYDROCHLORIDE
     Indication: HYPERSENSITIVITY
  4. ZANTAC [Concomitant]
     Active Substance: RANITIDINE HYDROCHLORIDE
     Indication: PRODUCT USED FOR UNKNOWN INDICATION
  5. NEURONTIN [Concomitant]
     Active Substance: GABAPENTIN
     Indication: PAIN IN EXTREMITY
  6. DOXYCYCLINE. [Concomitant]
     Active Substance: DOXYCYCLINE
     Indication: STAPHYLOCOCCAL INFECTION
     Dosage: THREE TIMES A WEEK (MONDAY, WEDNESDAY AND FRIDAY)
  7. NALTREXONE [Concomitant]
     Active Substance: NALTREXONE
     Indication: ALCOHOLISM
  8. PROTONIX [Concomitant]
     Active Substance: PANTOPRAZOLE SODIUM
     Indication: GASTROOESOPHAGEAL REFLUX DISEASE
  9. ALLEGRA [Concomitant]
     Active Substance: FEXOFENADINE HYDROCHLORIDE
     Indication: PRURITUS
  10. MINOCYCLINE [Concomitant]
     Active Substance: MINOCYCLINE\MINOCYCLINE HYDROCHLORIDE
     Indication: OSTEOMYELITIS
  11. DOXYCYCLINE. [Concomitant]
     Active Substance: DOXYCYCLINE
     Indication: OSTEOMYELITIS
  12. LYRICA [Concomitant]
     Active Substance: PREGABALIN
     Indication: PAIN

REACTIONS (2)
  - Drug ineffective [Recovered/Resolved]
  - Body height decreased [Unknown]

NARRATIVE: CASE EVENT DATE: 201802
